FAERS Safety Report 5876494-1 (Version None)
Quarter: 2008Q3

REPORT INFORMATION
  Report Type: 
  Country: None (occurrence: None)
  Receive Date: 20080910
  Receipt Date: 20080905
  Transmission Date: 20090109
  Serious: Yes (Death, Hospitalization)
  Sender: FDA-Public Use
  Company Number: A0746816A

PATIENT
  Age: 84 Year
  Sex: Female
  Weight: 48 kg

DRUGS (4)
  1. SERETIDE [Suspect]
     Indication: ASTHMA
     Dosage: 1PUFF TWICE PER DAY
     Route: 055
     Dates: start: 20060903, end: 20080807
  2. DUOVENT [Concomitant]
     Dates: start: 20060101, end: 20080807
  3. CAPTOPRIL [Concomitant]
     Dates: start: 20000101, end: 20080807
  4. MONOCORDIL [Concomitant]
     Dates: start: 20060101, end: 20080807

REACTIONS (1)
  - DEATH [None]
